FAERS Safety Report 16005759 (Version 4)
Quarter: 2019Q3

REPORT INFORMATION
  Report Type: Report from Study
  Country: None (occurrence: CH)
  Receive Date: 20190226
  Receipt Date: 20190724
  Transmission Date: 20191004
  Serious: Yes (Hospitalization)
  Sender: FDA-Public Use
  Company Number: CH-ABBVIE-19S-151-2677733-00

PATIENT
  Age: 75 Year
  Sex: Male

DRUGS (4)
  1. MOVICOL [Concomitant]
     Active Substance: POLYETHYLENE GLYCOL 3350\POTASSIUM CHLORIDE\SODIUM BICARBONATE\SODIUM CHLORIDE
     Indication: CONSTIPATION
  2. DUODOPA [Suspect]
     Active Substance: CARBIDOPA\LEVODOPA
     Indication: PARKINSON^S DISEASE
     Route: 050
     Dates: start: 20170515, end: 20180103
  3. DUODOPA [Suspect]
     Active Substance: CARBIDOPA\LEVODOPA
     Dosage: MD: 7 ML?CRD: 3.8 ML/H?ED: 1 ML,16H THERAPY
     Route: 050
     Dates: start: 20180103, end: 20180816
  4. DUODOPA [Suspect]
     Active Substance: CARBIDOPA\LEVODOPA
     Dosage: MD: 4 ML?CRD2.5 ML/H?ED: 1 ML ,16H THERAPY
     Route: 050
     Dates: start: 20180816

REACTIONS (6)
  - Device connection issue [Recovered/Resolved]
  - Respiratory syncytial virus infection [Unknown]
  - Somnolence [Unknown]
  - Akinesia [Unknown]
  - Pneumonia [Unknown]
  - Constipation [Recovered/Resolved]

NARRATIVE: CASE EVENT DATE: 201904
